FAERS Safety Report 9742968 (Version 1)
Quarter: 2013Q4

REPORT INFORMATION
  Report Type: Spontaneous
  Country: US (occurrence: US)
  Receive Date: 20131210
  Receipt Date: 20131210
  Transmission Date: 20140711
  Serious: Yes (Other)
  Sender: FDA-Public Use
  Company Number: US-BAYER-2013-147391

PATIENT
  Age: 49 Year
  Sex: Female
  Weight: 75 kg

DRUGS (5)
  1. ALEVE CAPLET [Suspect]
     Indication: ANALGESIC THERAPY
     Dosage: 2 DF, PRN
     Route: 048
     Dates: end: 20131201
  2. ATORVASTATIN [Concomitant]
  3. PRILOSEC [Concomitant]
  4. MELOXICAM [Concomitant]
  5. VITAMIN D NOS [Concomitant]

REACTIONS (7)
  - Hypersensitivity [Not Recovered/Not Resolved]
  - Burning sensation [Not Recovered/Not Resolved]
  - Pruritus [Not Recovered/Not Resolved]
  - Diarrhoea [Not Recovered/Not Resolved]
  - Vomiting [Not Recovered/Not Resolved]
  - Agitation [None]
  - Nervousness [None]
